FAERS Safety Report 9164139 (Version 1)
Quarter: 2013Q1

REPORT INFORMATION
  Report Type: Spontaneous
  Country: DE (occurrence: DE)
  Receive Date: 20130315
  Receipt Date: 20130315
  Transmission Date: 20140127
  Serious: No
  Sender: FDA-Public Use
  Company Number: DE-009507513-1303DEU007206

PATIENT
  Sex: Female

DRUGS (1)
  1. SYCREST [Suspect]

REACTIONS (2)
  - Lip swelling [Recovered/Resolved]
  - Oedema mouth [Recovered/Resolved]
